FAERS Safety Report 8261313-9 (Version None)
Quarter: 2012Q2

REPORT INFORMATION
  Report Type: 
  Country: None (occurrence: None)
  Receive Date: 20120402
  Receipt Date: 20120322
  Transmission Date: 20120825
  Serious: Yes (Death, Hospitalization, Disabling, Other)
  Sender: FDA-Public Use
  Company Number: 2011MA003502

PATIENT
  Sex: Female
  Weight: 63.5036 kg

DRUGS (3)
  1. COMPAZINE [Concomitant]
  2. METOCLOPRAMIDE [Suspect]
     Indication: NAUSEA
     Dosage: 10 MG;TID;PO
     Route: 048
     Dates: start: 20050801, end: 20050901
  3. FUROSEMIDE [Concomitant]

REACTIONS (34)
  - NAUSEA [None]
  - TREMOR [None]
  - HYPERTENSION [None]
  - EMPHYSEMA [None]
  - DYSARTHRIA [None]
  - VASCULAR PARKINSONISM [None]
  - CEREBRAL ISCHAEMIA [None]
  - BLADDER DYSFUNCTION [None]
  - HEMIPLEGIA [None]
  - ANXIETY [None]
  - DEMENTIA [None]
  - EXTRAPYRAMIDAL DISORDER [None]
  - ATRIAL FIBRILLATION [None]
  - FALL [None]
  - ECONOMIC PROBLEM [None]
  - MUSCLE RIGIDITY [None]
  - MASKED FACIES [None]
  - TARDIVE DYSKINESIA [None]
  - DYSTONIA [None]
  - EMOTIONAL DISORDER [None]
  - BEDRIDDEN [None]
  - HYPERTONIA [None]
  - NEUROLOGICAL SYMPTOM [None]
  - HYPOTHYROIDISM [None]
  - OSTEOARTHRITIS [None]
  - COGWHEEL RIGIDITY [None]
  - CORONARY ARTERY DISEASE [None]
  - FAMILY STRESS [None]
  - BRADYKINESIA [None]
  - HYPERLIPIDAEMIA [None]
  - MACULAR DEGENERATION [None]
  - MONOCLONAL IMMUNOGLOBULIN PRESENT [None]
  - WHEELCHAIR USER [None]
  - MICROANGIOPATHY [None]
